FAERS Safety Report 13090488 (Version 5)
Quarter: 2020Q1

REPORT INFORMATION
  Report Type: Spontaneous
  Country: US (occurrence: US)
  Receive Date: 20170105
  Receipt Date: 20200102
  Transmission Date: 20200409
  Serious: No
  Sender: FDA-Public Use
  Company Number: US-ACTELION-A-US2016-143643

PATIENT
  Age: 81 Year
  Sex: Female

DRUGS (14)
  1. REMODULIN [Concomitant]
     Active Substance: TREPROSTINIL
  2. TRAMADOL. [Concomitant]
     Active Substance: TRAMADOL
  3. PAZEO [Concomitant]
     Active Substance: OLOPATADINE HYDROCHLORIDE
  4. OMEPRAZOLE. [Concomitant]
     Active Substance: OMEPRAZOLE
  5. PRAVASTATIN SODIUM. [Concomitant]
     Active Substance: PRAVASTATIN SODIUM
  6. OPSUMIT [Suspect]
     Active Substance: MACITENTAN
     Indication: PULMONARY ARTERIAL HYPERTENSION
     Dosage: 10 MG, QD
     Route: 048
     Dates: start: 20131205
  7. POTASSIUM [Concomitant]
     Active Substance: POTASSIUM
  8. ORENITRAM [Concomitant]
     Active Substance: TREPROSTINIL
     Dosage: 6 MG, TID
     Dates: start: 20161129
  9. REVATIO [Concomitant]
     Active Substance: SILDENAFIL CITRATE
  10. LASIX [Concomitant]
     Active Substance: FUROSEMIDE
  11. ORENITRAM [Concomitant]
     Active Substance: TREPROSTINIL
     Dosage: 325 MG, TID
  12. DORZOLAMIDE HCL [Concomitant]
     Active Substance: DORZOLAMIDE HYDROCHLORIDE
  13. DIGOXIN. [Concomitant]
     Active Substance: DIGOXIN
  14. HUMULIN NOS [Concomitant]
     Active Substance: INSULIN HUMAN

REACTIONS (5)
  - Vasoconstriction [Not Recovered/Not Resolved]
  - Diarrhoea [Unknown]
  - Headache [Unknown]
  - Arthralgia [Unknown]
  - Nasopharyngitis [Unknown]

NARRATIVE: CASE EVENT DATE: 20160927
